FAERS Safety Report 11632301 (Version 1)
Quarter: 2015Q4

REPORT INFORMATION
  Report Type: Report from Study
  Country: US (occurrence: US)
  Receive Date: 20151015
  Receipt Date: 20151015
  Transmission Date: 20160304
  Serious: Yes (Other)
  Sender: FDA-Public Use
  Company Number: US-AMGEN-USASL2015106842

PATIENT
  Sex: Female

DRUGS (1)
  1. ENBREL [Suspect]
     Active Substance: ETANERCEPT
     Indication: PRODUCT USED FOR UNKNOWN INDICATION
     Dosage: 50 MG, UNK
     Route: 065
     Dates: end: 2015

REACTIONS (6)
  - Fall [Unknown]
  - Chronic obstructive pulmonary disease [Unknown]
  - Abasia [Unknown]
  - Thyroid mass [Unknown]
  - Tracheal disorder [Unknown]
  - Foot fracture [Unknown]
